FAERS Safety Report 8808627 (Version 1)
Quarter: 2012Q4

REPORT INFORMATION
  Report Type: 
  Country: US (occurrence: US)
  Receive Date: 20120926
  Receipt Date: 20120926
  Transmission Date: 20130627
  Serious: Yes (Other)
  Sender: FDA-Public Use
  Company Number: PHEH2012US018448

PATIENT
  Sex: Female

DRUGS (1)
  1. EXJADE [Suspect]

REACTIONS (5)
  - Posterior reversible encephalopathy syndrome [Unknown]
  - Grand mal convulsion [Unknown]
  - Blood pressure increased [Unknown]
  - Renal tubular acidosis [Unknown]
  - Renal failure [Unknown]
